FAERS Safety Report 9465210 (Version 2)
Quarter: 2013Q3

REPORT INFORMATION
  Report Type: Spontaneous
  Country: US (occurrence: US)
  Receive Date: 20130819
  Receipt Date: 20130906
  Transmission Date: 20140515
  Serious: Yes (Death, Hospitalization)
  Sender: FDA-Public Use
  Company Number: US-B.I. PHARMACEUTICALS,INC./RIDGEFIELD-2013-BI-25497BP

PATIENT
  Age: 90 Year
  Sex: Male

DRUGS (5)
  1. PRADAXA [Suspect]
     Indication: ATRIAL FIBRILLATION
     Dosage: 300 MG
     Dates: start: 201208
  2. ASPIRIN [Concomitant]
     Dosage: 81 MG
  3. LIPITOR [Concomitant]
     Dosage: 10 MG
  4. METANX [Concomitant]
  5. MORPHINE [Concomitant]

REACTIONS (3)
  - Hypovolaemic shock [Fatal]
  - Thrombocytopenia [Fatal]
  - Lower gastrointestinal haemorrhage [Unknown]
